FAERS Safety Report 5646079-0 (Version None)
Quarter: 2008Q1

REPORT INFORMATION
  Report Type: 
  Country: None (occurrence: None)
  Receive Date: 20080229
  Receipt Date: 20080221
  Transmission Date: 20080703
  Serious: Yes (Other)
  Sender: FDA-Public Use
  Company Number: GB-MERCK-0802GBR00084

PATIENT
  Age: 71 Year
  Sex: Female
  Weight: 47 kg

DRUGS (2)
  1. FOSAMAX [Suspect]
     Route: 048
     Dates: start: 20070802
  2. CALCIUM CARBONATE [Concomitant]
     Route: 048
     Dates: start: 20070802

REACTIONS (2)
  - LIP SWELLING [None]
  - SWOLLEN TONGUE [None]
